FAERS Safety Report 11811019 (Version 1)
Quarter: 2015Q4

REPORT INFORMATION
  Report Type: Spontaneous
  Country: US (occurrence: US)
  Receive Date: 20151208
  Receipt Date: 20151208
  Transmission Date: 20160305
  Serious: Yes (Other)
  Sender: FDA-Public Use
  Company Number: US-OTSUKA-2015_016212

PATIENT

DRUGS (8)
  1. DACOGEN [Suspect]
     Active Substance: DECITABINE
     Indication: METASTATIC MALIGNANT MELANOMA
     Dosage: 5 MG/M2, IN 1 DAY OVER 1 H DAILY FOR 5 DAYS, ON DAYS 1-5 DURING A 28-DAY TREATMENT CYCLE
     Route: 042
  2. INTERFERON ALFA 2B [Suspect]
     Active Substance: INTERFERON ALFA-2B
     Dosage: 4.5 ?G/KG, 1 IN 1 WEEK
     Route: 058
  3. INTERFERON ALFA 2B [Suspect]
     Active Substance: INTERFERON ALFA-2B
     Indication: METASTATIC MALIGNANT MELANOMA
     Dosage: 1.5 ?G/KG, 1 IN 1 WEEK
     Route: 058
  4. INTERFERON ALFA 2B [Suspect]
     Active Substance: INTERFERON ALFA-2B
     Dosage: 3 ?G/KG, 1 IN 1 WEEK
     Route: 058
  5. DACOGEN [Suspect]
     Active Substance: DECITABINE
     Dosage: 10 MG/M2, IN 1 DAY
     Route: 042
  6. DACOGEN [Suspect]
     Active Substance: DECITABINE
     Dosage: 10 MG/M2, IN 1 DAY
     Route: 042
  7. DACOGEN [Suspect]
     Active Substance: DECITABINE
     Dosage: 15 MG/M2, IN 1 DAY
     Route: 042
  8. INTERFERON ALFA 2B [Suspect]
     Active Substance: INTERFERON ALFA-2B
     Dosage: 3 ?G/KG, 1 IN 1 WEEK
     Route: 058

REACTIONS (6)
  - Hydrocephalus [Unknown]
  - Off label use [Unknown]
  - Product use issue [Unknown]
  - Failure to thrive [Unknown]
  - Intraventricular haemorrhage [Unknown]
  - Urinary tract infection [Unknown]
